FAERS Safety Report 8119026 (Version 2)
Quarter: 2013Q3

REPORT INFORMATION
  Report Type: Spontaneous
  Country: US (occurrence: US)
  Receive Date: 20110902
  Receipt Date: 20130805
  Transmission Date: 20140515
  Serious: No
  Sender: FDA-Public Use
  Company Number: US-ELI_LILLY_AND_COMPANY-US200603004293

PATIENT
  Age: 42 Year
  Sex: Male
  Weight: 107.9 kg

DRUGS (8)
  1. ZYPREXA [Suspect]
     Dosage: UNK
     Dates: start: 199603, end: 2000
  2. ZYPREXA [Suspect]
     Dosage: 2.5 MG, EACH EVENING
     Dates: start: 20000801
  3. FLUOXETINE HYDROCHLORIDE [Concomitant]
     Dosage: 80 MG, DAILY (1/D)
     Route: 048
  4. DEPAKOTE [Concomitant]
     Dosage: 1250 MG, 2/D
     Route: 048
  5. TRAZODONE [Concomitant]
     Dosage: 100 MG, EACH EVENING
     Route: 048
  6. DOXEPIN [Concomitant]
  7. ZYPREXA [Suspect]
     Indication: POST-TRAUMATIC STRESS DISORDER
     Dosage: 5 MG, DAILY (1/D)
     Route: 048
     Dates: end: 19970917
  8. ZYPREXA [Suspect]
     Indication: SCHIZOAFFECTIVE DISORDER
     Dosage: 10 MG, DAILY (1/D)
     Route: 048

REACTIONS (7)
  - Pancreatic disorder [Unknown]
  - Dependence [Unknown]
  - Type 2 diabetes mellitus [Not Recovered/Not Resolved]
  - Insomnia [Unknown]
  - Drug withdrawal syndrome [Unknown]
  - Blood glucose increased [Unknown]
  - Off label use [Recovered/Resolved]
